FAERS Safety Report 9388250 (Version 1)
Quarter: 2013Q3

REPORT INFORMATION
  Report Type: Spontaneous
  Country: US (occurrence: None)
  Receive Date: 20130703
  Receipt Date: 20130703
  Transmission Date: 20140515
  Serious: Yes (Hospitalization, Other)
  Sender: FDA-Public Use
  Company Number: DAV-AE-MTX-13-39

PATIENT
  Age: 66 Year
  Sex: Female

DRUGS (1)
  1. METHOTREXATE [Suspect]
     Indication: CENTRAL NERVOUS SYSTEM LYMPHOMA
     Dosage: 10X,
     Route: 037

REACTIONS (6)
  - Nausea [None]
  - Dizziness [None]
  - Myoclonus [None]
  - Disturbance in attention [None]
  - Memory impairment [None]
  - Overdose [None]
